FAERS Safety Report 17491652 (Version 1)
Quarter: 2020Q1

REPORT INFORMATION
  Report Type: Spontaneous
  Country: FR (occurrence: FR)
  Receive Date: 20200304
  Receipt Date: 20200304
  Transmission Date: 20200409
  Serious: Yes (Life-Threatening, Hospitalization)
  Sender: FDA-Public Use
  Company Number: FR-TEVA-2020-FR-1193911

PATIENT
  Age: 90 Year
  Sex: Female

DRUGS (14)
  1. CANDESARTAN CILEXETIL. [Suspect]
     Active Substance: CANDESARTAN CILEXETIL
     Indication: HYPERTENSION
     Route: 048
  2. ACIDE FOLIQUE [Concomitant]
     Active Substance: FOLIC ACID
  3. METOJECT [Suspect]
     Active Substance: METHOTREXATE SODIUM
     Indication: PEMPHIGOID
     Route: 048
  4. ESIDREX [Suspect]
     Active Substance: HYDROCHLOROTHIAZIDE
     Indication: HYPERTENSION
     Route: 048
  5. ZOPICLONE [Concomitant]
     Active Substance: ZOPICLONE
  6. SERETIDE [Concomitant]
     Active Substance: FLUTICASONE PROPIONATE\SALMETEROL XINAFOATE
  7. DIPROSONE [Concomitant]
     Active Substance: BETAMETHASONE DIPROPIONATE
  8. ACUPAN [Concomitant]
     Active Substance: NEFOPAM HYDROCHLORIDE
  9. KARDEGIC [Concomitant]
     Active Substance: ASPIRIN DL-LYSINE
  10. ESOMEPRAZOLE. [Concomitant]
     Active Substance: ESOMEPRAZOLE MAGNESIUM
  11. RILMENIDINE [Concomitant]
     Active Substance: RILMENIDINE
  12. DOXYCYCLINE. [Suspect]
     Active Substance: DOXYCYCLINE
     Indication: PEMPHIGOID
     Route: 048
  13. DIAMICRON [Suspect]
     Active Substance: GLICLAZIDE
     Indication: TYPE 2 DIABETES MELLITUS
     Route: 048
  14. PARACETAMOL [Concomitant]
     Active Substance: ACETAMINOPHEN

REACTIONS (1)
  - Pancreatitis acute [Recovering/Resolving]

NARRATIVE: CASE EVENT DATE: 20200204
